FAERS Safety Report 14857431 (Version 1)
Quarter: 2018Q2

REPORT INFORMATION
  Report Type: Spontaneous
  Country: US (occurrence: US)
  Receive Date: 20180508
  Receipt Date: 20180508
  Transmission Date: 20180711
  Serious: No
  Sender: FDA-Public Use
  Company Number: US-RADIUS HEALTH INC.-2018US000365

PATIENT
  Age: 61 Year
  Sex: Male
  Weight: 61.22 kg

DRUGS (2)
  1. TYMLOS [Suspect]
     Active Substance: ABALOPARATIDE
     Indication: OFF LABEL USE
  2. TYMLOS [Suspect]
     Active Substance: ABALOPARATIDE
     Indication: OSTEOPOROSIS POSTMENOPAUSAL
     Dosage: 80 MCG, DAILY
     Route: 058
     Dates: start: 201707

REACTIONS (4)
  - Off label use [Unknown]
  - Multiple allergies [Unknown]
  - Nasal congestion [Unknown]
  - Head discomfort [Unknown]

NARRATIVE: CASE EVENT DATE: 201807
